FAERS Safety Report 6615692-6 (Version None)
Quarter: 2010Q1

REPORT INFORMATION
  Report Type: 
  Country: None (occurrence: None)
  Receive Date: 20100305
  Receipt Date: 20100222
  Transmission Date: 20100710
  Serious: Yes (Other)
  Sender: FDA-Public Use
  Company Number: US-ROCHE-688399

PATIENT
  Age: 45 Year
  Sex: Female

DRUGS (3)
  1. BEVACIZUMAB [Suspect]
     Indication: BREAST CANCER
     Dosage: DATE OF MOST RECENT DOSE PRIOR TO SAE: 16 JANUARY 2010. DOSE AS PER THE PROTOCOL.
     Route: 065
  2. EPIRUBICIN [Suspect]
     Indication: BREAST CANCER
     Dosage: DATE OF MOST RECENT DOSE PRIOR TO SAE: 16 JANUARY 2010. DOSE AS PER PROTOCOL.
     Route: 065
  3. CYCLOPHOSPHAMIDE [Suspect]
     Indication: BREAST CANCER
     Dosage: DATE OF MOST RECENT DOSE PRIOR TO SAE: 16 JANUARY 2010. DOSE AS PER THE PROTOCOL
     Route: 065

REACTIONS (1)
  - DEPRESSION [None]
